FAERS Safety Report 23678900 (Version 6)
Quarter: 2024Q3

REPORT INFORMATION
  Report Type: Report from Study
  Country: MA (occurrence: MA)
  Receive Date: 20240327
  Receipt Date: 20240710
  Transmission Date: 20241016
  Serious: Yes (Other)
  Sender: EMD SERONO INC
  Company Number: MA-Merck Healthcare KGaA-2024015643

PATIENT
  Age: 19 Year
  Sex: Female

DRUGS (1)
  1. REBIF [Suspect]
     Active Substance: INTERFERON BETA-1A
     Indication: Multiple sclerosis
     Dosage: 0.5ML (UG MICROGRAMS)
     Route: 058
     Dates: start: 20230227

REACTIONS (4)
  - Blindness [Recovered/Resolved]
  - Multiple sclerosis [Unknown]
  - Pain in extremity [Unknown]
  - Headache [Recovering/Resolving]

NARRATIVE: CASE EVENT DATE: 20240301
